FAERS Safety Report 8013811-0 (Version None)
Quarter: 2011Q4

REPORT INFORMATION
  Report Type: 
  Country: None (occurrence: None)
  Receive Date: 20111229
  Receipt Date: 20111216
  Transmission Date: 20120403
  Serious: Yes (Other)
  Sender: FDA-Public Use
  Company Number: PHHY2011PL111539

PATIENT
  Age: 51 Year
  Sex: Male

DRUGS (7)
  1. MYFORTIC [Suspect]
     Indication: RENAL AND PANCREAS TRANSPLANT
     Dosage: 720 MG, TID
  2. CERTICAN [Concomitant]
     Indication: IMMUNOSUPPRESSION
     Dosage: 1.5 MG, BID
  3. OMEPRAZOLE [Concomitant]
     Dosage: 20 MG
  4. STEROIDS NOS [Concomitant]
  5. MYFORTIC [Suspect]
     Dosage: 760 MG, BID
  6. PREDNISONE [Concomitant]
  7. GRANULOCYTE STIMULATING FACTORS [Concomitant]
     Indication: IMMUNOSUPPRESSION

REACTIONS (7)
  - THROMBOTIC MICROANGIOPATHY [None]
  - PANCREATIC ABSCESS [None]
  - COMPLICATIONS OF TRANSPLANTED KIDNEY [None]
  - DIABETES MELLITUS INADEQUATE CONTROL [None]
  - PANCREATIC NECROSIS [None]
  - VENOUS THROMBOSIS [None]
  - KIDNEY TRANSPLANT REJECTION [None]
